FAERS Safety Report 21884061 (Version 2)
Quarter: 2023Q1

REPORT INFORMATION
  Report Type: Report from Study
  Country: US (occurrence: US)
  Receive Date: 20230119
  Receipt Date: 20230329
  Transmission Date: 20230417
  Serious: No
  Sender: FDA-Public Use
  Company Number: US-ABBVIE-4244250

PATIENT
  Age: 67 Year
  Sex: Female
  Weight: 64.41 kg

DRUGS (2)
  1. HUMIRA [Suspect]
     Active Substance: ADALIMUMAB
     Indication: Rheumatoid arthritis
     Dosage: CITRATE FREE
     Route: 058
     Dates: start: 20080701
  2. HUMIRA [Suspect]
     Active Substance: ADALIMUMAB
     Dosage: CITRATE FREE
     Route: 058

REACTIONS (4)
  - Influenza [Not Recovered/Not Resolved]
  - Herpes zoster [Recovered/Resolved]
  - Ulcer [Unknown]
  - Erythema [Unknown]

NARRATIVE: CASE EVENT DATE: 20221122
